FAERS Safety Report 8872601 (Version 2)
Quarter: 2012Q4

REPORT INFORMATION
  Report Type: 
  Country: US (occurrence: None)
  Receive Date: 20121031
  Receipt Date: 20121214
  Transmission Date: 20130627
  Serious: Yes (Life-Threatening)
  Sender: FDA-Public Use
  Company Number: None

PATIENT
  Age: 75 Year
  Sex: Male
  Weight: 117.94 kg

DRUGS (1)
  1. METHYLPREDNISOLONE [Suspect]

REACTIONS (2)
  - Meningitis [None]
  - Post procedural infection [None]
